FAERS Safety Report 5127593-3 (Version None)
Quarter: 2006Q4

REPORT INFORMATION
  Report Type: 
  Country: None (occurrence: None)
  Receive Date: 20061016
  Receipt Date: 20061003
  Transmission Date: 20070319
  Serious: Yes (Other)
  Sender: FDA-Public Use
  Company Number: PHBS2006BR15563

PATIENT
  Sex: Female

DRUGS (6)
  1. TRILEPTAL [Suspect]
     Indication: EPILEPSY
     Dosage: 5 ML, Q12H
     Route: 048
     Dates: start: 20040101
  2. TRILEPTAL [Suspect]
     Dosage: 3 ML, BID
     Route: 048
     Dates: end: 20060301
  3. TRILEPTAL [Suspect]
     Dosage: 5 ML, Q12H
     Route: 048
     Dates: start: 20060301, end: 20060301
  4. TRILEPTAL [Suspect]
     Dosage: 4 ML, Q12H
     Route: 048
     Dates: start: 20060301, end: 20060601
  5. TRILEPTAL [Suspect]
     Dosage: 5 ML, Q12H
     Route: 048
     Dates: start: 20060601
  6. TRILEPTAL [Suspect]
     Dosage: 300 MG, Q12H
     Route: 048
     Dates: start: 20060701

REACTIONS (5)
  - ASTHENIA [None]
  - CARDIO-RESPIRATORY ARREST [None]
  - EPILEPSY [None]
  - HEART RATE INCREASED [None]
  - LOSS OF CONSCIOUSNESS [None]
